FAERS Safety Report 9694070 (Version 2)
Quarter: 2013Q4

REPORT INFORMATION
  Report Type: Spontaneous
  Country: US (occurrence: US)
  Receive Date: 20131118
  Receipt Date: 20131118
  Transmission Date: 20140711
  Serious: No
  Sender: FDA-Public Use
  Company Number: US-GILEAD-2013-0086585

PATIENT
  Sex: Male
  Weight: 123.81 kg

DRUGS (12)
  1. LETAIRIS [Suspect]
     Indication: PULMONARY ARTERIAL HYPERTENSION
     Dosage: 5 MG, QD
     Dates: start: 20100212, end: 201309
  2. ALLERCLEAR [Concomitant]
  3. AMBIEN [Concomitant]
  4. AVODART [Concomitant]
  5. FLOMAX                             /00889901/ [Concomitant]
  6. PRILOSEC                           /00661201/ [Concomitant]
  7. TYLENOL ARTHRITIS [Concomitant]
  8. VITEYES [Concomitant]
  9. FUROSEMIDE [Concomitant]
  10. METOPROLOL [Concomitant]
  11. SUCCINATE SODIUM [Concomitant]
  12. QUINAPRIL [Concomitant]

REACTIONS (5)
  - Catheterisation cardiac [Unknown]
  - Abdominal distension [Unknown]
  - Dyspnoea [Unknown]
  - Nasal congestion [Recovered/Resolved]
  - Oedema peripheral [Unknown]
